FAERS Safety Report 13756679 (Version 3)
Quarter: 2017Q3

REPORT INFORMATION
  Report Type: Report from Study
  Country: FR (occurrence: FR)
  Receive Date: 20170714
  Receipt Date: 20170906
  Transmission Date: 20171127
  Serious: Yes (Hospitalization)
  Sender: FDA-Public Use
  Company Number: FR-CELGENEUS-FRA-20170700394

PATIENT
  Age: 26 Year
  Sex: Female
  Weight: 58.4 kg

DRUGS (3)
  1. PENTASA [Concomitant]
     Active Substance: MESALAMINE
     Indication: COLITIS ULCERATIVE
     Dosage: 2 GRAM
     Route: 048
     Dates: start: 201504
  2. CC-10004 [Suspect]
     Active Substance: APREMILAST
     Indication: COLITIS ULCERATIVE
     Route: 048
     Dates: start: 20170222, end: 20170630
  3. CC-10004 [Suspect]
     Active Substance: APREMILAST
     Route: 048
     Dates: start: 20170601

REACTIONS (1)
  - Anal abscess [Recovered/Resolved]

NARRATIVE: CASE EVENT DATE: 20170625
